FAERS Safety Report 13107352 (Version 2)
Quarter: 2017Q1

REPORT INFORMATION
  Report Type: Spontaneous
  Country: JP (occurrence: JP)
  Receive Date: 20170112
  Receipt Date: 20170123
  Transmission Date: 20170428
  Serious: Yes (Hospitalization)
  Sender: FDA-Public Use
  Company Number: JP-CIPLA LTD.-2017JP00422

PATIENT

DRUGS (4)
  1. ACYCLOVIR. [Suspect]
     Active Substance: ACYCLOVIR
     Indication: HERPES SIMPLEX MENINGITIS
     Dosage: 1500 MG, PER DAY
     Route: 065
  2. VALACYCLOVIR [Suspect]
     Active Substance: VALACYCLOVIR HYDROCHLORIDE
     Indication: GENITAL HERPES
     Dosage: 500 MG, EACH DAY FOR EVERY RECURRENCE
     Route: 048
  3. VIDARABINE [Suspect]
     Active Substance: VIDARABINE
     Indication: MENINGITIS ASEPTIC
     Dosage: 600 MG, PER DAY
     Route: 065
  4. ACYCLOVIR. [Suspect]
     Active Substance: ACYCLOVIR
     Dosage: 750 MG, PER DAY
     Route: 065
     Dates: start: 201507

REACTIONS (2)
  - Genital herpes [Unknown]
  - Meningitis aseptic [Recovered/Resolved]
